FAERS Safety Report 7632018-X (Version None)
Quarter: 2011Q3

REPORT INFORMATION
  Report Type: 
  Country: None (occurrence: None)
  Receive Date: 20110725
  Receipt Date: 20110117
  Transmission Date: 20111222
  Serious: No
  Sender: FDA-Public Use
  Company Number: US-BRISTOL-MYERS SQUIBB COMPANY-14924880

PATIENT
  Age: 89 Year
  Sex: Female
  Weight: 63 kg

DRUGS (7)
  1. TYLENOL-500 [Concomitant]
  2. PRILOSEC [Concomitant]
  3. COUMADIN [Suspect]
     Indication: ATRIAL FIBRILLATION
     Dosage: 2MG 4 DAYS/WK 3MG 3 DAYS/WK
     Route: 048
     Dates: start: 20070101
  4. AMIODARONE HCL [Concomitant]
  5. OMEPRAZOLE [Concomitant]
  6. FOLBIC [Concomitant]
  7. MULTAQ [Concomitant]

REACTIONS (1)
  - SKIN DISCOLOURATION [None]
